FAERS Safety Report 8156590-9 (Version None)
Quarter: 2012Q1

REPORT INFORMATION
  Report Type: 
  Country: None (occurrence: None)
  Receive Date: 20120222
  Receipt Date: 20120214
  Transmission Date: 20120608
  Serious: Yes (Other)
  Sender: FDA-Public Use
  Company Number: US-PFIZER INC-2012040195

PATIENT
  Sex: Male
  Weight: 102.4 kg

DRUGS (4)
  1. VYTORIN [Concomitant]
     Indication: BLOOD CHOLESTEROL INCREASED
     Dosage: UNK
  2. ALBUTEROL [Concomitant]
     Indication: GOUT
     Dosage: UNK
  3. LISINOPRIL [Concomitant]
     Indication: HYPERTENSION
     Dosage: UNK
  4. CELEBREX [Suspect]
     Indication: OSTEOARTHRITIS
     Dosage: 200 MG, 1X/DAY
     Route: 048
     Dates: start: 20110101

REACTIONS (4)
  - JOINT STIFFNESS [None]
  - DIABETES MELLITUS [None]
  - PRODUCT MEASURED POTENCY ISSUE [None]
  - ARTHRALGIA [None]
